FAERS Safety Report 5915503-8 (Version None)
Quarter: 2008Q4

REPORT INFORMATION
  Report Type: 
  Country: None (occurrence: None)
  Receive Date: 20081010
  Receipt Date: 20080929
  Transmission Date: 20090506
  Serious: Yes (Death)
  Sender: FDA-Public Use
  Company Number: SG-PFIZER INC-2006105544

PATIENT
  Sex: Male
  Weight: 74 kg

DRUGS (4)
  1. SU-011,248 [Suspect]
     Indication: METASTATIC RENAL CELL CARCINOMA
     Route: 048
     Dates: start: 20060123, end: 20060830
  2. HYDROCHLOROTHIAZIDE [Concomitant]
     Route: 048
     Dates: start: 20060422
  3. POTASSIUM CHLORIDE [Concomitant]
     Route: 048
     Dates: start: 20060422
  4. DIOSMIN [Concomitant]
     Route: 048
     Dates: start: 20060418

REACTIONS (1)
  - INTESTINAL ISCHAEMIA [None]
